FAERS Safety Report 19416143 (Version 1)
Quarter: 2021Q2

REPORT INFORMATION
  Report Type: Spontaneous
  Country: US (occurrence: US)
  Receive Date: 20210614
  Receipt Date: 20210614
  Transmission Date: 20210717
  Serious: No
  Sender: FDA-Public Use
  Company Number: None

PATIENT
  Age: 31 Year
  Sex: Female

DRUGS (1)
  1. TEMOZOLOMIDE CAP 20MG [Suspect]
     Active Substance: TEMOZOLOMIDE
     Dosage: OTHER
     Route: 048
     Dates: start: 202106

REACTIONS (2)
  - Therapy interrupted [None]
  - Off label use [None]

NARRATIVE: CASE EVENT DATE: 20210614
